FAERS Safety Report 5321277-4 (Version None)
Quarter: 2007Q2

REPORT INFORMATION
  Report Type: 
  Country: None (occurrence: None)
  Receive Date: 20070507
  Receipt Date: 20070507
  Transmission Date: 20071010
  Serious: No
  Sender: FDA-Public Use
  Company Number: None

PATIENT
  Age: 54 Year
  Sex: Female
  Weight: 60.782 kg

DRUGS (2)
  1. ZITHROMAX [Suspect]
     Indication: PHARYNGITIS
     Dosage: ONCE DAILY PO
     Route: 048
  2. ZITHROMAX [Suspect]
     Indication: SINUSITIS
     Dosage: ONCE DAILY PO
     Route: 048

REACTIONS (1)
  - TINNITUS [None]
